FAERS Safety Report 6898073-X (Version None)
Quarter: 2010Q3

REPORT INFORMATION
  Report Type: 
  Country: None (occurrence: None)
  Receive Date: 20100729
  Receipt Date: 20100719
  Transmission Date: 20110219
  Serious: Yes (Other)
  Sender: FDA-Public Use
  Company Number: 011028

PATIENT
  Age: 80 Year
  Sex: Female
  Weight: 70 kg

DRUGS (3)
  1. NEUPRO [Suspect]
     Indication: PARKINSON'S DISEASE
     Dosage: 4 MG 1X/24 HOURS TRANSDERMAL
     Route: 062
     Dates: start: 20100427, end: 20100504
  2. KEPPRA [Concomitant]
  3. ASPIRIN [Concomitant]

REACTIONS (1)
  - ORTHOSTATIC HYPERTENSION [None]
